FAERS Safety Report 25150026 (Version 2)
Quarter: 2025Q2

REPORT INFORMATION
  Report Type: Spontaneous
  Country: US (occurrence: US)
  Receive Date: 20250402
  Receipt Date: 20250404
  Transmission Date: 20250717
  Serious: Yes (Death)
  Sender: PFIZER
  Company Number: US-PFIZER INC-202500069315

PATIENT
  Age: 69 Year
  Sex: Female

DRUGS (6)
  1. IBRANCE [Suspect]
     Active Substance: PALBOCICLIB
     Indication: Breast cancer female
     Dates: start: 20230905
  2. PREDNISONE [Concomitant]
     Active Substance: PREDNISONE
  3. OSELTAMIVIR [Concomitant]
     Active Substance: OSELTAMIVIR
  4. DOXYCYCLINE [Concomitant]
     Active Substance: DOXYCYCLINE
  5. ANASTROZOLE [Concomitant]
     Active Substance: ANASTROZOLE
  6. VITAMIN B12 [Concomitant]
     Active Substance: CYANOCOBALAMIN

REACTIONS (1)
  - Death [Fatal]

NARRATIVE: CASE EVENT DATE: 20250317
